FAERS Safety Report 13658168 (Version 5)
Quarter: 2017Q3

REPORT INFORMATION
  Report Type: Spontaneous
  Country: IT (occurrence: IT)
  Receive Date: 20170616
  Receipt Date: 20170926
  Transmission Date: 20171127
  Serious: Yes (Death)
  Sender: FDA-Public Use
  Company Number: IT-ROCHE-1949443

PATIENT
  Age: 80 Year
  Sex: Male
  Weight: 60 kg

DRUGS (12)
  1. METRONIDAZOLE. [Suspect]
     Active Substance: METRONIDAZOLE
     Indication: INFECTION
     Dosage: METRONIDAZOLE BAXTER?0.5%
     Route: 042
     Dates: start: 20170330, end: 20170417
  2. ENOXAPARIN [Concomitant]
     Active Substance: ENOXAPARIN
     Route: 058
  3. DEXDOR [Concomitant]
     Active Substance: DEXMEDETOMIDINE HYDROCHLORIDE
  4. AMOXICILLIN/CLAVULANIC ACID [Suspect]
     Active Substance: AMOXICILLIN\CLAVULANIC ACID
     Indication: INFECTION
     Route: 042
     Dates: start: 20170330
  5. LINEZOLID. [Concomitant]
     Active Substance: LINEZOLID
     Dosage: 600 MG X 2
     Route: 065
  6. METOCLOPRAMIDE. [Concomitant]
     Active Substance: METOCLOPRAMIDE
  7. CEFTRIAXONE. [Suspect]
     Active Substance: CEFTRIAXONE
     Indication: INFECTION
     Route: 042
     Dates: start: 20170330, end: 20170417
  8. TARGOCID [Suspect]
     Active Substance: TEICOPLANIN
     Indication: INFECTION
     Route: 042
     Dates: start: 20170330, end: 20170410
  9. FUROSEMIDE. [Concomitant]
     Active Substance: FUROSEMIDE
  10. PROPOFOL. [Concomitant]
     Active Substance: PROPOFOL
  11. REMIFENTANIL [Concomitant]
     Active Substance: REMIFENTANIL
  12. RIVAROXABAN [Concomitant]
     Active Substance: RIVAROXABAN
     Indication: ATRIAL FIBRILLATION

REACTIONS (2)
  - Hepatic failure [Fatal]
  - Hyperbilirubinaemia [Fatal]

NARRATIVE: CASE EVENT DATE: 20170407
